FAERS Safety Report 17565796 (Version 1)
Quarter: 2020Q1

REPORT INFORMATION
  Report Type: Spontaneous
  Country: US (occurrence: US)
  Receive Date: 20200308
  Receipt Date: 20200308
  Transmission Date: 20200409
  Serious: Yes (Hospitalization)
  Sender: FDA-Public Use
  Company Number: None

PATIENT
  Age: 37 Year
  Sex: Female
  Weight: 69.75 kg

DRUGS (11)
  1. ZITHROMAX [Suspect]
     Active Substance: AZITHROMYCIN DIHYDRATE
     Indication: SINUSITIS
     Dosage: ?          QUANTITY:1 CAPSULE(S);?
     Route: 048
     Dates: start: 20200302, end: 20200306
  2. COQ10 [Concomitant]
     Active Substance: UBIDECARENONE
  3. TRUCALM [Concomitant]
  4. FISH OIL [Concomitant]
     Active Substance: FISH OIL
  5. HAWTHORNE [Concomitant]
  6. GARLIC. [Concomitant]
     Active Substance: GARLIC
  7. CLARITIN [Concomitant]
     Active Substance: LORATADINE
  8. MIRCETTE [Concomitant]
     Active Substance: DESOGESTREL\ETHINYL ESTRADIOL
  9. RUTIN [Concomitant]
     Active Substance: RUTIN
  10. B COMPLEX VITAMIN [Concomitant]
  11. HOLY BASIL SAM-E [Concomitant]

REACTIONS (2)
  - Paraesthesia [None]
  - Paraesthesia oral [None]

NARRATIVE: CASE EVENT DATE: 20200306
